FAERS Safety Report 19611458 (Version 1)
Quarter: 2021Q3

REPORT INFORMATION
  Report Type: Other
  Country: DE (occurrence: DE)
  Receive Date: 20210726
  Receipt Date: 20210726
  Transmission Date: 20211014
  Serious: Yes (Other)
  Sender: FDA-Public Use
  Company Number: DE-LUPIN PHARMACEUTICALS INC.-2021-12503

PATIENT
  Age: 33 Year
  Sex: Male
  Weight: 80 kg

DRUGS (7)
  1. ATOMOXETIN [Interacting]
     Active Substance: ATOMOXETINE HYDROCHLORIDE
     Dosage: 65 MILLIGRAM, QD (FROM HERE APPEARANCE OF THE UAW)
     Dates: start: 20200625, end: 20200910
  2. QUETIAPINE FUMARATE. [Interacting]
     Active Substance: QUETIAPINE FUMARATE
     Dosage: 200 MILLIGRAM, QD
     Route: 065
     Dates: start: 20200625, end: 20200628
  3. ATOMOXETIN [Interacting]
     Active Substance: ATOMOXETINE HYDROCHLORIDE
     Dosage: 60 MILLIGRAM, QD
     Route: 065
     Dates: start: 20200624, end: 20200624
  4. QUETIAPINE FUMARATE. [Interacting]
     Active Substance: QUETIAPINE FUMARATE
     Dosage: 400 MILLIGRAM, QD (B.A.W.)
     Route: 065
     Dates: start: 20200918
  5. ATOMOXETIN [Interacting]
     Active Substance: ATOMOXETINE HYDROCHLORIDE
     Indication: PRODUCT USED FOR UNKNOWN INDICATION
     Dosage: 40 MILLIGRAM, QD
     Route: 065
     Dates: start: 20200619, end: 20200623
  6. QUETIAPINE FUMARATE. [Suspect]
     Active Substance: QUETIAPINE FUMARATE
     Indication: PRODUCT USED FOR UNKNOWN INDICATION
     Dosage: 100 MILLIGRAM, QD
     Route: 065
     Dates: start: 20200622, end: 20200624
  7. QUETIAPINE FUMARATE. [Interacting]
     Active Substance: QUETIAPINE FUMARATE
     Dosage: 300 MILLIGRAM, QD (FROM HERE APPEARANCE OF THE UAW)
     Route: 065
     Dates: start: 20200629, end: 20200917

REACTIONS (5)
  - Pollakiuria [Recovered/Resolved]
  - Ejaculation disorder [Recovering/Resolving]
  - Drug interaction [Unknown]
  - Dysuria [Recovered/Resolved]
  - Erectile dysfunction [Recovering/Resolving]

NARRATIVE: CASE EVENT DATE: 20200703
